FAERS Safety Report 10179943 (Version 1)
Quarter: 2014Q2

REPORT INFORMATION
  Report Type: Spontaneous
  Country: US (occurrence: US)
  Receive Date: 20140519
  Receipt Date: 20140519
  Transmission Date: 20141212
  Serious: No
  Sender: FDA-Public Use
  Company Number: US-BRISTOL-MYERS SQUIBB COMPANY-18910471

PATIENT
  Age: 58 Year
  Sex: Male
  Weight: 84.8 kg

DRUGS (2)
  1. BARACLUDE [Suspect]
     Indication: HEPATITIS B
     Dates: start: 20130508
  2. SYNTHROID [Concomitant]

REACTIONS (1)
  - Pruritus [Recovering/Resolving]
